FAERS Safety Report 24868506 (Version 1)
Quarter: 2025Q1

REPORT INFORMATION
  Report Type: Spontaneous
  Country: SE (occurrence: None)
  Receive Date: 20250119
  Receipt Date: 20250119
  Transmission Date: 20250408
  Serious: Yes (Disabling)
  Sender: FDA-CTU
  Company Number: None

PATIENT
  Age: 46 Year
  Sex: Male
  Weight: 73 kg

DRUGS (4)
  1. BRINTELLIX [Suspect]
     Active Substance: VORTIOXETINE HYDROBROMIDE
     Indication: Insomnia
     Dosage: FREQUENCY : DAILY;?
     Route: 048
     Dates: start: 20240125, end: 20240126
  2. BRINTELLIX [Suspect]
     Active Substance: VORTIOXETINE HYDROBROMIDE
     Indication: Anxiety
  3. BRINTELLIX [Suspect]
     Active Substance: VORTIOXETINE HYDROBROMIDE
     Indication: Depression
  4. TADALAFIL [Concomitant]
     Active Substance: TADALAFIL

REACTIONS (4)
  - Blunted affect [None]
  - Anhedonia [None]
  - Muscle atrophy [None]
  - Sexual dysfunction [None]

NARRATIVE: CASE EVENT DATE: 20240125
